FAERS Safety Report 8303473-7 (Version None)
Quarter: 2012Q2

REPORT INFORMATION
  Report Type: 
  Country: None (occurrence: None)
  Receive Date: 20120423
  Receipt Date: 20120418
  Transmission Date: 20120825
  Serious: Yes (Other)
  Sender: FDA-Public Use
  Company Number: US-PFIZER INC-2012097197

PATIENT
  Sex: Female
  Weight: 108 kg

DRUGS (3)
  1. ZETIA [Concomitant]
     Indication: BLOOD CHOLESTEROL ABNORMAL
     Dosage: UNK (EITHER 10MG OR 20 MG), DAILY
  2. PRAVASTATIN SODIUM [Concomitant]
     Indication: BLOOD CHOLESTEROL ABNORMAL
     Dosage: UNK (EITHER 10MG OR 20 MG), DAILY
  3. CORTEF [Suspect]
     Indication: ADRENAL INSUFFICIENCY
     Dosage: UNK MG, 2X/DAY
     Route: 048
     Dates: start: 20030501

REACTIONS (1)
  - CATARACT [None]
